FAERS Safety Report 10129285 (Version 1)
Quarter: 2014Q2

REPORT INFORMATION
  Report Type: Spontaneous
  Country: US (occurrence: US)
  Receive Date: 20140428
  Receipt Date: 20140428
  Transmission Date: 20141212
  Serious: No
  Sender: FDA-Public Use
  Company Number: US-ABBVIE-14P-163-1208090-00

PATIENT
  Age: 60 Year
  Sex: Male
  Weight: 89.44 kg

DRUGS (3)
  1. ANDROGEL [Suspect]
     Indication: BLOOD TESTOSTERONE DECREASED
     Route: 061
     Dates: start: 201308, end: 201402
  2. ANDROGEL [Suspect]
     Route: 061
     Dates: start: 20140220
  3. AMLODIPINE [Concomitant]
     Indication: HYPERTENSION

REACTIONS (4)
  - Drug dose omission [Not Recovered/Not Resolved]
  - Application site dryness [Not Recovered/Not Resolved]
  - Application site pruritus [Not Recovered/Not Resolved]
  - Application site erythema [Not Recovered/Not Resolved]
